FAERS Safety Report 4568692-4 (Version None)
Quarter: 2005Q1

REPORT INFORMATION
  Report Type: 
  Country: None (occurrence: None)
  Receive Date: 20050202
  Receipt Date: 20050126
  Transmission Date: 20050727
  Serious: Yes (Hospitalization)
  Sender: FDA-Public Use
  Company Number: US-MERCK-0501USA04028

PATIENT
  Age: 52 Year
  Sex: Female

DRUGS (6)
  1. ZOCOR [Suspect]
     Route: 048
     Dates: start: 20020101, end: 20040921
  2. ESTROGEL [Suspect]
     Indication: MENOPAUSE
     Route: 065
     Dates: start: 20020101, end: 20040921
  3. ATACAND [Suspect]
     Route: 065
     Dates: start: 20020101, end: 20040921
  4. [THERAPY UNSPECIFIED] [Suspect]
     Route: 065
     Dates: end: 20040921
  5. VIOXX [Suspect]
     Route: 048
     Dates: end: 20040921
  6. ENBREL [Suspect]
     Route: 065
     Dates: end: 20040921

REACTIONS (2)
  - ANGINA PECTORIS [None]
  - CORONARY ARTERY ATHEROSCLEROSIS [None]
